FAERS Safety Report 6830260-9 (Version None)
Quarter: 2010Q3

REPORT INFORMATION
  Report Type: 
  Country: None (occurrence: None)
  Receive Date: 20100712
  Receipt Date: 20100630
  Transmission Date: 20110219
  Serious: Yes (Hospitalization)
  Sender: FDA-Public Use
  Company Number: US-BIOGENIDEC-2010BI020122

PATIENT
  Age: 49 Year
  Sex: Female

DRUGS (1)
  1. TYSABRI [Suspect]
     Indication: MULTIPLE SCLEROSIS
     Route: 042
     Dates: start: 20100226

REACTIONS (22)
  - ABSCESS ORAL [None]
  - AMNESIA [None]
  - ANGER [None]
  - ANXIETY [None]
  - APPARENT DEATH [None]
  - ASTHENIA [None]
  - BACK PAIN [None]
  - CONTUSION [None]
  - DECREASED INTEREST [None]
  - DEPRESSION [None]
  - DYSPNOEA [None]
  - FATIGUE [None]
  - FEELING HOT [None]
  - INSOMNIA [None]
  - MOBILITY DECREASED [None]
  - MUSCULOSKELETAL PAIN [None]
  - NECK PAIN [None]
  - NIGHTMARE [None]
  - ORAL INFECTION [None]
  - PERSONALITY CHANGE [None]
  - SCOLIOSIS [None]
  - SENSORY DISTURBANCE [None]
